FAERS Safety Report 10661455 (Version 1)
Quarter: 2014Q4

REPORT INFORMATION
  Report Type: Spontaneous
  Country: GB (occurrence: GB)
  Receive Date: 20141218
  Receipt Date: 20141218
  Transmission Date: 20150529
  Serious: Yes (Congenital Anomaly, Other)
  Sender: FDA-Public Use
  Company Number: GB-TEVA-529032ISR

PATIENT

DRUGS (2)
  1. SERTRALINE [Suspect]
     Active Substance: SERTRALINE HYDROCHLORIDE
     Route: 064
  2. TRAMADOL [Suspect]
     Active Substance: TRAMADOL
     Route: 064

REACTIONS (3)
  - Congenital floppy infant [Not Recovered/Not Resolved]
  - Foetal exposure during pregnancy [Unknown]
  - Apnoeic attack [Not Recovered/Not Resolved]
